FAERS Safety Report 5455885-7 (Version None)
Quarter: 2007Q3

REPORT INFORMATION
  Report Type: 
  Country: None (occurrence: None)
  Receive Date: 20070918
  Receipt Date: 20070228
  Transmission Date: 20080115
  Serious: Yes (Other)
  Sender: FDA-Public Use
  Company Number: US-ASTRAZENECA-2006UW24126

PATIENT
  Sex: Female
  Weight: 103.2 kg

DRUGS (6)
  1. SEROQUEL [Suspect]
     Indication: MENTAL DISORDER
     Route: 048
     Dates: start: 19970101, end: 19970101
  2. SEROQUEL [Suspect]
     Indication: DEPRESSION
     Route: 048
     Dates: start: 19970101, end: 19970101
  3. ABILIFY [Suspect]
  4. ZYPREXA [Suspect]
  5. HALDOL [Concomitant]
  6. LAMOTRIGINE [Concomitant]

REACTIONS (5)
  - DIABETES MELLITUS [None]
  - DIABETIC KETOACIDOSIS [None]
  - HYPERPROLACTINAEMIA [None]
  - PANCREATITIS [None]
  - TARDIVE DYSKINESIA [None]
